FAERS Safety Report 11508748 (Version 1)
Quarter: 2015Q3

REPORT INFORMATION
  Report Type: Spontaneous
  Country: US (occurrence: US)
  Receive Date: 20150903
  Receipt Date: 20150903
  Transmission Date: 20151125
  Serious: No
  Sender: FDA-Public Use
  Company Number: US-ELI_LILLY_AND_COMPANY-US201001004103

PATIENT
  Age: 62 Year
  Sex: Female

DRUGS (12)
  1. HUMALOG [Suspect]
     Active Substance: INSULIN LISPRO
     Dosage: 9 U, EACH EVENING
     Dates: start: 200812
  2. HUMALOG [Suspect]
     Active Substance: INSULIN LISPRO
  3. HUMALOG [Suspect]
     Active Substance: INSULIN LISPRO
     Indication: DIABETES MELLITUS
     Dosage: 5 U, EACH MORNING
     Dates: start: 200812
  4. HUMALOG [Suspect]
     Active Substance: INSULIN LISPRO
     Dosage: 5 U, EACH MORNING
     Dates: start: 200812
  5. HUMALOG [Suspect]
     Active Substance: INSULIN LISPRO
     Dosage: 9 U, EACH EVENING
     Dates: start: 200812
  6. BYETTA [Concomitant]
     Active Substance: EXENATIDE
     Dates: end: 200812
  7. METFORMIN [Concomitant]
     Active Substance: METFORMIN HYDROCHLORIDE
  8. LIPITOR [Concomitant]
     Active Substance: ATORVASTATIN CALCIUM
  9. HUMALOG [Suspect]
     Active Substance: INSULIN LISPRO
     Dosage: 9 U, OTHER
     Dates: start: 200812
  10. LANTUS [Concomitant]
     Active Substance: INSULIN GLARGINE
     Dosage: UNK, EACH EVENING
  11. HUMALOG [Suspect]
     Active Substance: INSULIN LISPRO
     Dosage: 9 U, OTHER
     Dates: start: 200812
  12. SYNTHROID [Concomitant]
     Active Substance: LEVOTHYROXINE SODIUM

REACTIONS (3)
  - Drug dispensing error [Unknown]
  - Blood glucose increased [Not Recovered/Not Resolved]
  - Blood glucose decreased [Not Recovered/Not Resolved]

NARRATIVE: CASE EVENT DATE: 200812
